FAERS Safety Report 6531341-X (Version None)
Quarter: 2010Q1

REPORT INFORMATION
  Report Type: 
  Country: None (occurrence: None)
  Receive Date: 20100108
  Receipt Date: 20090921
  Transmission Date: 20100710
  Serious: No
  Sender: FDA-Public Use
  Company Number: A0808284A

PATIENT
  Age: 62 Year
  Sex: Female

DRUGS (6)
  1. TYKERB [Suspect]
     Indication: BREAST CANCER
     Dosage: 5TAB PER DAY
     Route: 048
     Dates: start: 20080301
  2. HERCEPTIN [Concomitant]
     Route: 042
  3. LYRICA [Concomitant]
  4. HYDROMORPHONE [Concomitant]
  5. AMITRIPTYLINE [Concomitant]
  6. NEXIUM [Concomitant]

REACTIONS (4)
  - DIARRHOEA [None]
  - NAUSEA [None]
  - RASH [None]
  - SKIN CHAPPED [None]
